FAERS Safety Report 5038652-8 (Version None)
Quarter: 2006Q2

REPORT INFORMATION
  Report Type: 
  Country: None (occurrence: None)
  Receive Date: 20060628
  Receipt Date: 20060628
  Transmission Date: 20061013
  Serious: Yes (Death)
  Sender: FDA-Public Use
  Company Number: None

PATIENT
  Age: 84 Year
  Sex: Male
  Weight: 61.8253 kg

DRUGS (2)
  1. CLEOCIN PHOSPHATE [Suspect]
     Indication: SEPSIS
     Dosage: 300 MG ONCE IV DRIP
     Route: 041
     Dates: start: 20060517, end: 20060517
  2. LEVOFLOXACIN [Concomitant]

REACTIONS (4)
  - HYPOTENSION [None]
  - INCORRECT DOSE ADMINISTERED [None]
  - LOSS OF CONSCIOUSNESS [None]
  - MEDICATION ERROR [None]
